FAERS Safety Report 5964953-2 (Version None)
Quarter: 2008Q4

REPORT INFORMATION
  Report Type: 
  Country: None (occurrence: None)
  Receive Date: 20081125
  Receipt Date: 20081112
  Transmission Date: 20090506
  Serious: Yes (Other)
  Sender: FDA-Public Use
  Company Number: PHBS2008HR06336

PATIENT
  Age: 35 Year
  Sex: Male

DRUGS (6)
  1. CLOZAPINE [Suspect]
     Indication: ANXIETY
     Dosage: 300 MG/DAY
  2. CLOZAPINE [Suspect]
     Dosage: UNK
  3. CLOZAPINE [Suspect]
     Dosage: 350 MG/DAY
  4. RISPERIDONE [Concomitant]
     Dosage: 6 MG/DAY
  5. BIPERIDEN HYDROCHLORIDE TAB [Concomitant]
     Indication: TREMOR
     Dosage: 4 MG/DAY
  6. BIPERIDEN HYDROCHLORIDE TAB [Concomitant]
     Dosage: 8 MG/DAY

REACTIONS (5)
  - FALL [None]
  - HEAD INJURY [None]
  - INCORRECT DOSE ADMINISTERED [None]
  - LOSS OF CONSCIOUSNESS [None]
  - TREMOR [None]
